FAERS Safety Report 9742528 (Version 2)
Quarter: 2013Q4

REPORT INFORMATION
  Report Type: Spontaneous
  Country: US (occurrence: US)
  Receive Date: 20131210
  Receipt Date: 20131210
  Transmission Date: 20140711
  Serious: Yes (Other)
  Sender: FDA-Public Use
  Company Number: US-TAKEDA-TPA2013A04692

PATIENT
  Sex: 0

DRUGS (4)
  1. ACTOS [Suspect]
     Indication: TYPE 2 DIABETES MELLITUS
     Dosage: 30 MG, UNK
     Dates: start: 20110313, end: 20120103
  2. ACTOS [Suspect]
     Dosage: UNK
  3. GLYBURIDE [Concomitant]
     Dosage: 5 MG DAILY
     Dates: start: 20101129, end: 20110105
  4. GLYBURIDE [Concomitant]
     Dosage: 5 MG DAILY
     Dates: start: 20110313, end: 20111127

REACTIONS (2)
  - Urinary retention [Recovered/Resolved]
  - Bladder cancer [Unknown]
